FAERS Safety Report 13362407 (Version 1)
Quarter: 2017Q1

REPORT INFORMATION
  Report Type: Report from Study
  Country: BR (occurrence: BR)
  Receive Date: 20170323
  Receipt Date: 20170323
  Transmission Date: 20170429
  Serious: Yes (Death, Hospitalization)
  Sender: FDA-Public Use
  Company Number: PHHY2017BR044099

PATIENT
  Sex: Female
  Weight: 30 kg

DRUGS (1)
  1. EXELON PATCH [Suspect]
     Active Substance: RIVASTIGMINE
     Indication: DEMENTIA ALZHEIMER^S TYPE
     Dosage: 9.5 MG, QD PATCH 10 (CM2)
     Route: 062
     Dates: end: 20170306

REACTIONS (4)
  - Chronic kidney disease [Fatal]
  - Cardiac failure congestive [Fatal]
  - Cardio-respiratory arrest [Fatal]
  - Acute kidney injury [Fatal]
